FAERS Safety Report 14760625 (Version 1)
Quarter: 2018Q2

REPORT INFORMATION
  Report Type: Spontaneous
  Country: US (occurrence: US)
  Receive Date: 20180414
  Receipt Date: 20180414
  Transmission Date: 20180711
  Serious: No
  Sender: FDA-Public Use
  Company Number: US-009507513-1804USA005062

PATIENT
  Sex: Male

DRUGS (7)
  1. MYLANTA [Concomitant]
     Active Substance: ALUMINUM HYDROXIDE\DIMETHICONE\MAGNESIUM HYDROXIDE
  2. TYLENOL [Concomitant]
     Active Substance: ACETAMINOPHEN
  3. INTRON A [Suspect]
     Active Substance: INTERFERON ALFA-2B
     Indication: MALIGNANT MELANOMA
     Dosage: 1 DF, TIW
     Route: 058
     Dates: start: 20171007
  4. MIRTAZAPINE. [Concomitant]
     Active Substance: MIRTAZAPINE
  5. OMEPRAZOLE. [Concomitant]
     Active Substance: OMEPRAZOLE
  6. CENTRUM (CYTIDINE (+) URIDINE) [Concomitant]
  7. SENOKOT [Concomitant]
     Active Substance: SENNOSIDES

REACTIONS (2)
  - Decreased appetite [Unknown]
  - Influenza like illness [Unknown]
